FAERS Safety Report 5073415-9 (Version None)
Quarter: 2006Q3

REPORT INFORMATION
  Report Type: 
  Country: None (occurrence: None)
  Receive Date: 20060808
  Receipt Date: 20060726
  Transmission Date: 20061208
  Serious: Yes (Hospitalization)
  Sender: FDA-Public Use
  Company Number: PHBS2006JP11316

PATIENT
  Age: 79 Year
  Sex: Male

DRUGS (3)
  1. TOFRANIL [Suspect]
     Indication: BENIGN PROSTATIC HYPERPLASIA
     Route: 048
     Dates: start: 20040101, end: 20040101
  2. TOFRANIL [Suspect]
     Dosage: 10 MG/D
     Route: 048
     Dates: start: 20060711, end: 20060714
  3. HARNAL [Suspect]
     Dosage: 0.2 MG/D
     Route: 048
     Dates: start: 20040401

REACTIONS (4)
  - ALANINE AMINOTRANSFERASE INCREASED [None]
  - ASPARTATE AMINOTRANSFERASE INCREASED [None]
  - LIVER DISORDER [None]
  - PYREXIA [None]
